FAERS Safety Report 25916282 (Version 1)
Quarter: 2025Q4

REPORT INFORMATION
  Report Type: Report from Study
  Country: US (occurrence: US)
  Receive Date: 20251014
  Receipt Date: 20251014
  Transmission Date: 20260118
  Serious: Yes (Hospitalization)
  Sender: ABBVIE
  Company Number: US-ABBVIE-6439568

PATIENT
  Age: 22 Year
  Sex: Male

DRUGS (5)
  1. SKYRIZI [Suspect]
     Active Substance: RISANKIZUMAB-RZAA
     Indication: Crohn^s disease
     Dosage: TIME INTERVAL: TOTAL: WEEK 12?STRENGTH: 360MG/2.4M
     Route: 058
     Dates: start: 20250818, end: 20250818
  2. SKYRIZI [Suspect]
     Active Substance: RISANKIZUMAB-RZAA
     Dosage: STRENGTH: 360MG/2.4M, FIRST ADMIN DATE: 2025, THEN EVERY 8 WEEKS THEREAFTER
     Route: 058
  3. SKYRIZI [Suspect]
     Active Substance: RISANKIZUMAB-RZAA
     Indication: Crohn^s disease
     Dosage: TIME INTERVAL: TOTAL: WEEK 0
     Route: 042
     Dates: start: 20250527, end: 20250527
  4. SKYRIZI [Suspect]
     Active Substance: RISANKIZUMAB-RZAA
     Indication: Crohn^s disease
     Dosage: TIME INTERVAL: TOTAL: WEEK 8
     Route: 042
     Dates: start: 20250721, end: 20250721
  5. SKYRIZI [Suspect]
     Active Substance: RISANKIZUMAB-RZAA
     Indication: Crohn^s disease
     Dosage: TIME INTERVAL: TOTAL: WEEK 4
     Route: 042
     Dates: start: 20250624, end: 20250624

REACTIONS (12)
  - Dizziness [Recovered/Resolved]
  - Headache [Recovered/Resolved]
  - Nausea [Recovered/Resolved]
  - SARS-CoV-2 test positive [Unknown]
  - Oropharyngeal pain [Unknown]
  - Fungal infection [Unknown]
  - Cough [Unknown]
  - Malaise [Unknown]
  - Pineal gland cyst [Unknown]
  - Cerebral cyst [Unknown]
  - Rash macular [Unknown]
  - Skin disorder [Unknown]

NARRATIVE: CASE EVENT DATE: 20250101
